FAERS Safety Report 5602703-X (Version None)
Quarter: 2008Q1

REPORT INFORMATION
  Report Type: 
  Country: None (occurrence: None)
  Receive Date: 20080125
  Receipt Date: 20080116
  Transmission Date: 20080703
  Serious: Yes (Hospitalization)
  Sender: FDA-Public Use
  Company Number: JP-ASTRAZENECA-2008AP00370

PATIENT
  Age: 57 Year
  Sex: Male
  Weight: 73 kg

DRUGS (9)
  1. CRESTOR [Interacting]
     Indication: HYPERLIPIDAEMIA
     Route: 048
     Dates: start: 20071227, end: 20080108
  2. KENTAN [Interacting]
     Dosage: DOSE UNKNOWN
     Route: 048
     Dates: start: 20080104
  3. KEFRAL [Suspect]
     Dosage: DOSE UNKNOWN
     Route: 048
     Dates: start: 20080104
  4. ASPIRIN [Concomitant]
     Indication: MYOCARDIAL INFARCTION
     Route: 048
     Dates: start: 20031029
  5. RENIVEZE [Concomitant]
     Indication: MYOCARDIAL INFARCTION
     Route: 048
     Dates: start: 20031029
  6. ITOROL [Concomitant]
     Indication: MYOCARDIAL INFARCTION
     Route: 048
     Dates: start: 20031029
  7. POTOREND [Concomitant]
     Indication: HYPERURICAEMIA
     Route: 048
     Dates: start: 20060428
  8. ALLOZYM [Concomitant]
     Indication: HYPERURICAEMIA
     Route: 048
     Dates: start: 20060428
  9. METHYCOOL [Concomitant]
     Indication: SPINAL OSTEOARTHRITIS
     Route: 048
     Dates: start: 20070527

REACTIONS (2)
  - DRUG INTERACTION [None]
  - RENAL IMPAIRMENT [None]
